FAERS Safety Report 10025365 (Version 1)
Quarter: 2014Q1

REPORT INFORMATION
  Report Type: Report from Study
  Country: IE (occurrence: IE)
  Receive Date: 20140320
  Receipt Date: 20140320
  Transmission Date: 20141002
  Serious: Yes (Hospitalization)
  Sender: FDA-Public Use
  Company Number: IE-GLAXOSMITHKLINE-B0978128A

PATIENT
  Sex: Female

DRUGS (7)
  1. VOTRIENT [Suspect]
     Indication: PRODUCT USED FOR UNKNOWN INDICATION
     Dosage: 800MG PER DAY
     Route: 048
     Dates: start: 20140212
  2. PRAVASTATIN [Concomitant]
  3. ASPIRIN [Concomitant]
  4. GABAPENTIN [Concomitant]
  5. ZOTON [Concomitant]
  6. ELTROXIN [Concomitant]
  7. OXYCONTIN [Concomitant]

REACTIONS (1)
  - Malaise [Unknown]
